FAERS Safety Report 7088855-6 (Version None)
Quarter: 2010Q4

REPORT INFORMATION
  Report Type: 
  Country: None (occurrence: None)
  Receive Date: 20101029
  Receipt Date: 20101013
  Transmission Date: 20110411
  Serious: Yes (Hospitalization, Other)
  Sender: FDA-Public Use
  Company Number: 2010004335

PATIENT
  Sex: Male
  Weight: 80 kg

DRUGS (2)
  1. ERLOTINIB(ERLOTINIB) (TABLET) (ERLOTINIB) [Suspect]
     Indication: BILE DUCT CANCER
     Dosage: 100 MG, QD, ORAL
     Route: 048
     Dates: start: 20060821, end: 20070421
  2. BEVACIZUMAB (INJECTION FOR INFUSION) [Suspect]
     Indication: BILE DUCT CANCER
     Dosage: 5 MG/KG, DAYS 1 AND 15 OF EACH 28 DAY CYCLE, INTRAVENOUS
     Route: 042
     Dates: start: 20060821, end: 20070409

REACTIONS (16)
  - BACK PAIN [None]
  - BILE DUCT CANCER [None]
  - BILE DUCT STENOSIS [None]
  - BLOOD BILIRUBIN INCREASED [None]
  - CHILLS [None]
  - CHOLANGITIS [None]
  - DECREASED APPETITE [None]
  - DISEASE PROGRESSION [None]
  - DYSURIA [None]
  - FALL [None]
  - HYPOALBUMINAEMIA [None]
  - HYPONATRAEMIA [None]
  - INTERNATIONAL NORMALISED RATIO INCREASED [None]
  - MUSCULAR WEAKNESS [None]
  - PYREXIA [None]
  - TREMOR [None]
